FAERS Safety Report 7554635-8 (Version None)
Quarter: 2011Q2

REPORT INFORMATION
  Report Type: 
  Country: None (occurrence: None)
  Receive Date: 20110617
  Receipt Date: 20110606
  Transmission Date: 20111010
  Serious: Yes (Hospitalization)
  Sender: FDA-Public Use
  Company Number: BR-AMGEN-KDC441220

PATIENT
  Age: 26 Year
  Sex: Male

DRUGS (10)
  1. CALCIUM CARBONATE [Concomitant]
     Dosage: 2000 MG, TID
  2. FERROUS SULFATE TAB [Concomitant]
     Dosage: 100 MG, QWK
     Route: 042
  3. LEUCOVORIN CALCIUM [Concomitant]
     Dosage: 5 MG, QD
  4. CARBAMAZEPINE [Concomitant]
     Dosage: 400 MG, BID
  5. SEVELAMER [Concomitant]
     Dosage: 3200 MG, TID
  6. PROPRANOLOL [Concomitant]
     Dosage: 20 MG, QD
  7. CAPTOPRIL [Concomitant]
     Dosage: 50 MG, TID
  8. CINACALCET HYDROCHLORIDE [Suspect]
     Indication: HYPERPARATHYROIDISM SECONDARY
     Dosage: UNK BLINDED, QD
     Route: 048
     Dates: start: 20070809, end: 20100920
  9. VITAMIN B COMPLEX CAP [Concomitant]
     Dosage: UNK UNK, QD
  10. EPOGEN [Concomitant]
     Dosage: 4000 IU, 3 TIMES/WK
     Route: 058

REACTIONS (1)
  - DUODENITIS [None]
